FAERS Safety Report 6014530-2 (Version None)
Quarter: 2008Q4

REPORT INFORMATION
  Report Type: 
  Country: None (occurrence: None)
  Receive Date: 20081219
  Receipt Date: 20080804
  Transmission Date: 20090506
  Serious: No
  Sender: FDA-Public Use
  Company Number: A0740923A

PATIENT
  Age: 88 Year
  Sex: Male

DRUGS (3)
  1. AVODART [Suspect]
     Indication: BENIGN PROSTATIC HYPERPLASIA
     Route: 048
     Dates: start: 20080731
  2. FINASTERIDE [Concomitant]
  3. EYE DROPS [Concomitant]

REACTIONS (3)
  - GROIN PAIN [None]
  - NAUSEA [None]
  - PAIN [None]
